FAERS Safety Report 24740042 (Version 2)
Quarter: 2025Q1

REPORT INFORMATION
  Report Type: Spontaneous
  Country: CN (occurrence: CN)
  Receive Date: 20241216
  Receipt Date: 20250107
  Transmission Date: 20250409
  Serious: Yes (Hospitalization, Other)
  Sender: COVIS PHARMA GMBH
  Company Number: CN-Covis Pharma GmbH-2024COV01502

PATIENT
  Age: 80 Year
  Sex: Female

DRUGS (2)
  1. RILUTEK [Suspect]
     Active Substance: RILUZOLE
     Indication: Amyotrophic lateral sclerosis
     Route: 048
  2. EDARAVONE [Concomitant]
     Active Substance: EDARAVONE

REACTIONS (5)
  - Decreased appetite [Recovered/Resolved]
  - Abdominal pain upper [Recovered/Resolved]
  - Oxygen saturation decreased [Recovered/Resolved]
  - Condition aggravated [Recovered/Resolved]
  - Interstitial lung disease [Recovered/Resolved]

NARRATIVE: CASE EVENT DATE: 20241101
